FAERS Safety Report 4902603-4 (Version None)
Quarter: 2006Q1

REPORT INFORMATION
  Report Type: 
  Country: None (occurrence: None)
  Receive Date: 20060207
  Receipt Date: 20040802
  Transmission Date: 20060701
  Serious: Yes (Hospitalization)
  Sender: FDA-Public Use
  Company Number: ES-ROCHE-376367

PATIENT
  Age: 68 Year
  Sex: Male
  Weight: 80 kg

DRUGS (20)
  1. DACLIZUMAB [Suspect]
     Route: 042
     Dates: start: 20031111, end: 20031111
  2. DACLIZUMAB [Suspect]
     Route: 042
     Dates: start: 20031125, end: 20040109
  3. MYCOPHENOLATE MOFETIL [Suspect]
     Route: 048
     Dates: start: 20031111, end: 20040315
  4. MYCOPHENOLATE MOFETIL [Suspect]
     Route: 048
     Dates: start: 20040331
  5. SIROLIMUS [Suspect]
     Route: 048
     Dates: start: 20031112, end: 20040126
  6. VALGANCICLOVIR [Suspect]
     Indication: DRUG USE FOR UNKNOWN INDICATION
     Route: 048
     Dates: start: 20040113, end: 20040315
  7. PREDNISONE [Suspect]
     Route: 048
     Dates: start: 20031113, end: 20040317
  8. PREDNISONE [Suspect]
     Route: 048
     Dates: start: 20040319
  9. TACROLIMUS [Suspect]
     Route: 048
     Dates: start: 20040212
  10. OMEPRAZOLE [Concomitant]
     Route: 048
     Dates: start: 20031111
  11. 1ALPHA,25-DIHYDROXYVITAMIN D3 [Concomitant]
     Route: 048
     Dates: start: 20031118
  12. COTRIM [Concomitant]
     Route: 048
     Dates: start: 20031113
  13. AMLODIPINE [Concomitant]
     Dosage: STOPPED AT AN UNSPECIFIED TIME AND RE-STARTED ON 19 JANUARY 2004.
     Route: 048
     Dates: start: 20031116
  14. CARVEDILOL [Concomitant]
     Route: 048
     Dates: start: 20031125
  15. SULFATO FERROSO [Concomitant]
     Route: 048
     Dates: start: 20031121, end: 20040115
  16. DOXAZOSIN [Concomitant]
     Route: 048
     Dates: start: 20040108, end: 20040707
  17. EPOGEN [Concomitant]
     Route: 058
     Dates: start: 20040309, end: 20040312
  18. DIACEPAM [Concomitant]
     Route: 048
     Dates: start: 20040307, end: 20040312
  19. NOVONIACIN [Concomitant]
     Dosage: REPORTED AS 300/MG.
     Dates: start: 20040205, end: 20040217
  20. TRIMETHOPRIM + SULFAMETHOXAZOLE [Concomitant]
     Dates: start: 20031115, end: 20040511

REACTIONS (10)
  - ANAEMIA [None]
  - BONE MARROW TOXICITY [None]
  - CYTOMEGALOVIRUS INFECTION [None]
  - ESCHERICHIA INFECTION [None]
  - HAEMORRHAGE [None]
  - LEUKOPENIA [None]
  - PYELONEPHRITIS ACUTE [None]
  - RENAL TUBULAR NECROSIS [None]
  - THROMBOCYTOPENIA [None]
  - THROMBOTIC MICROANGIOPATHY [None]
